FAERS Safety Report 9419478 (Version 1)
Quarter: 2013Q3

REPORT INFORMATION
  Report Type: Spontaneous
  Country: US (occurrence: US)
  Receive Date: 20130725
  Receipt Date: 20130725
  Transmission Date: 20140515
  Serious: Yes (Other)
  Sender: FDA-Public Use
  Company Number: US-NOVOPROD-383359

PATIENT
  Sex: Female

DRUGS (2)
  1. NOVOLOG [Suspect]
     Indication: BLOOD GLUCOSE INCREASED
     Dosage: UNKNOWN
  2. LACTULOSE [Suspect]
     Indication: PRODUCT USED FOR UNKNOWN INDICATION
     Dosage: 40 G, 2 TABLESPOONS TWICE DAILY
     Route: 048

REACTIONS (3)
  - Fall [Unknown]
  - Incorrect product storage [Unknown]
  - Blood glucose fluctuation [Not Recovered/Not Resolved]
